FAERS Safety Report 6702428-3 (Version None)
Quarter: 2010Q2

REPORT INFORMATION
  Report Type: 
  Country: None (occurrence: None)
  Receive Date: 20100429
  Receipt Date: 20100427
  Transmission Date: 20101027
  Serious: Yes (Hospitalization)
  Sender: FDA-Public Use
  Company Number: A0856808A

PATIENT
  Sex: Female

DRUGS (6)
  1. TYKERB [Suspect]
     Dosage: 1250MG PER DAY
     Route: 048
     Dates: start: 20100418
  2. XELODA [Suspect]
     Route: 065
     Dates: end: 20100401
  3. DECADRON [Concomitant]
     Route: 065
  4. COZAAR [Concomitant]
     Route: 065
  5. HYDROCHLOROTHIAZIDE [Concomitant]
     Route: 065
  6. LOSEC I.V. [Concomitant]
     Route: 065

REACTIONS (3)
  - ASTHENIA [None]
  - CYSTITIS [None]
  - DIARRHOEA [None]
